FAERS Safety Report 8520575-0 (Version None)
Quarter: 2012Q3

REPORT INFORMATION
  Report Type: 
  Country: None (occurrence: None)
  Receive Date: 20120713
  Receipt Date: 20120713
  Transmission Date: 20120928
  Serious: Yes (Hospitalization)
  Sender: FDA-Public Use
  Company Number: None

PATIENT
  Age: 64 Year
  Sex: Male
  Weight: 93.9 kg

DRUGS (1)
  1. AZATHIOPRINE [Suspect]
     Indication: DERMATOMYOSITIS
     Dosage: MG EVERY DAY PO
     Route: 048
     Dates: start: 20120221, end: 20120504

REACTIONS (1)
  - PANCREATITIS ACUTE [None]
